FAERS Safety Report 8531819-3 (Version None)
Quarter: 2012Q3

REPORT INFORMATION
  Report Type: 
  Country: None (occurrence: None)
  Receive Date: 20120711
  Receipt Date: 20120701
  Transmission Date: 20120928
  Serious: Yes (Hospitalization, Other)
  Sender: FDA-Public Use
  Company Number: CL-432-2012

PATIENT
  Age: 60 Year
  Sex: Male

DRUGS (8)
  1. ASPIRIN [Concomitant]
  2. NIFEDIPINE [Concomitant]
  3. GLIMEPIRIDE [Concomitant]
  4. LABETALOL HCL [Concomitant]
  5. METFORMIN HYDROCHLORIDE [Concomitant]
  6. ACARBOSE [Concomitant]
  7. FAMOTIDINE [Suspect]
     Indication: PEPTIC ULCER
     Dosage: UNK UNK ORAL
     Route: 048
  8. TERAZOSIN HYDROCHLORIDE [Concomitant]

REACTIONS (5)
  - LEUKOCYTOSIS [None]
  - CEREBRAL INFARCTION [None]
  - EOSINOPHILIA [None]
  - BLOOD CREATINE PHOSPHOKINASE MB INCREASED [None]
  - MYOCARDIAL ISCHAEMIA [None]
